FAERS Safety Report 4366368-X (Version None)
Quarter: 2004Q2

REPORT INFORMATION
  Report Type: 
  Country: None (occurrence: None)
  Receive Date: 20040527
  Receipt Date: 20040130
  Transmission Date: 20050107
  Serious: No
  Sender: FDA-Public Use
  Company Number: US-GLAXOSMITHKLINE-A0495972A

PATIENT
  Age: 72 Year
  Sex: Female

DRUGS (7)
  1. ALBUTEROL [Suspect]
     Indication: ASTHMA
     Dosage: 1PUFF AS REQUIRED
     Route: 055
  2. VENTOLIN [Suspect]
     Indication: ASTHMA
     Dosage: 1PUFF AS REQUIRED
     Route: 055
  3. VENTOLIN [Suspect]
     Dosage: 1PUFF AS REQUIRED
     Route: 055
  4. XOPENEX [Concomitant]
  5. SYNTHROID [Concomitant]
  6. PRILOSEC [Concomitant]
  7. NORVASC [Concomitant]

REACTIONS (1)
  - TREMOR [None]
